FAERS Safety Report 5563877-2 (Version None)
Quarter: 2007Q4

REPORT INFORMATION
  Report Type: 
  Country: None (occurrence: None)
  Receive Date: 20071217
  Receipt Date: 20070917
  Transmission Date: 20080405
  Serious: No
  Sender: FDA-Public Use
  Company Number: US-ASTRAZENECA-2007UW21885

PATIENT

DRUGS (2)
  1. CRESTOR [Suspect]
     Route: 048
  2. HERBAL SUPPLEMENTS [Concomitant]

REACTIONS (5)
  - ANXIETY [None]
  - BACK PAIN [None]
  - HYPOAESTHESIA [None]
  - MENTAL DISORDER [None]
  - MYALGIA [None]
